FAERS Safety Report 6241999-0 (Version None)
Quarter: 2009Q2

REPORT INFORMATION
  Report Type: 
  Country: None (occurrence: None)
  Receive Date: 20090622
  Receipt Date: 20090616
  Transmission Date: 20091009
  Serious: Yes (Other)
  Sender: FDA-Public Use
  Company Number: CHPA2009US13614

PATIENT
  Age: 70 Year
  Sex: Female
  Weight: 81.6 kg

DRUGS (2)
  1. BENEFIBER W/WHEAT DEXTRIN            (WHEAT DEXTRIN) POWDER [Suspect]
     Indication: NUTRITIONAL SUPPORT
     Dosage: 2 TSP, QD, ORAL
     Route: 048
     Dates: start: 20080101
  2. DIOVAN [Concomitant]

REACTIONS (3)
  - BLISTER [None]
  - FOOD ALLERGY [None]
  - PRURITUS [None]
